FAERS Safety Report 7571450-X (Version None)
Quarter: 2011Q2

REPORT INFORMATION
  Report Type: 
  Country: None (occurrence: None)
  Receive Date: 20110624
  Receipt Date: 20110614
  Transmission Date: 20111010
  Serious: Yes (Hospitalization, Other)
  Sender: FDA-Public Use
  Company Number: CA-JNJFOC-20110607072

PATIENT
  Age: 9 Year
  Sex: Male

DRUGS (2)
  1. TYLENOL-500 [Concomitant]
     Indication: PYREXIA
     Route: 065
     Dates: start: 20110601
  2. CONCERTA [Suspect]
     Indication: ATTENTION DEFICIT/HYPERACTIVITY DISORDER
     Route: 048
     Dates: start: 20110525, end: 20110602

REACTIONS (5)
  - TIC [None]
  - NASOPHARYNGITIS [None]
  - MUSCLE SPASMS [None]
  - CHAPPED LIPS [None]
  - PYREXIA [None]
